FAERS Safety Report 5915195-8 (Version None)
Quarter: 2008Q3

REPORT INFORMATION
  Report Type: 
  Country: None (occurrence: None)
  Receive Date: 20080909
  Receipt Date: 20080110
  Transmission Date: 20090109
  Serious: Yes (Hospitalization)
  Sender: FDA-Public Use
  Company Number: 163-20785-08010602 (0)

PATIENT
  Age: 76 Year
  Sex: Female

DRUGS (7)
  1. THALOMID [Suspect]
     Indication: MULTIPLE MYELOMA
     Dosage: 150 MG, 3 IN 1 D, ORAL : 50-200MG, DAILY, ORAL
     Route: 048
     Dates: start: 20070828, end: 20071125
  2. THALOMID [Suspect]
     Indication: MULTIPLE MYELOMA
     Dosage: 150 MG, 3 IN 1 D, ORAL : 50-200MG, DAILY, ORAL
     Route: 048
     Dates: start: 20070401
  3. LANTUS [Concomitant]
  4. TRICOR [Concomitant]
  5. KEPPRA [Concomitant]
  6. DIOVAN [Concomitant]
  7. MONOPRIL [Concomitant]

REACTIONS (1)
  - CONVULSION [None]
